FAERS Safety Report 9814306 (Version 2)
Quarter: 2014Q1

REPORT INFORMATION
  Report Type: Spontaneous
  Country: PL (occurrence: PL)
  Receive Date: 20140113
  Receipt Date: 20140113
  Transmission Date: 20141002
  Serious: Yes (Other)
  Sender: FDA-Public Use
  Company Number: PHHY2011PL82084

PATIENT
  Age: 26 Year
  Sex: Female

DRUGS (9)
  1. CICLOSPORIN [Suspect]
     Indication: DERMATITIS ATOPIC
     Dosage: 5 MG/KG PER DAY
  2. PREDNISONE [Suspect]
     Indication: DERMATITIS ATOPIC
     Route: 048
  3. CORTICOSTEROIDS [Suspect]
     Indication: DERMATITIS ATOPIC
     Dosage: UNK UKN, UNK
  4. CYCLOPHOSPHAMIDE [Concomitant]
     Dosage: 250 MG/M2, UNK
  5. EMOLLIENTS AND PROTECTIVES [Concomitant]
     Dosage: UNK UKN, UNK
  6. ACYCLOVIR [Concomitant]
     Dosage: UNK UKN, UNK
  7. CO-TRIMOXAZOLE [Concomitant]
     Dosage: UNK UKN, UNK
  8. ALLOPURINOL [Concomitant]
     Dosage: UNK UKN, UNK
  9. 2-CDA [Concomitant]
     Dosage: 6 MG, QD

REACTIONS (11)
  - Mycosis fungoides [Recovering/Resolving]
  - Lymphocytic infiltration [Recovering/Resolving]
  - Dermatitis exfoliative [Recovering/Resolving]
  - Lymphadenopathy [Recovering/Resolving]
  - Pruritus [Unknown]
  - Skin lesion [Unknown]
  - Hepatomegaly [Recovering/Resolving]
  - Sezary cells increased [Recovering/Resolving]
  - Blood lactate dehydrogenase increased [Recovering/Resolving]
  - Erythema [Unknown]
  - Drug ineffective [Recovering/Resolving]
